FAERS Safety Report 10179172 (Version 1)
Quarter: 2014Q2

REPORT INFORMATION
  Report Type: Spontaneous
  Country: US (occurrence: None)
  Receive Date: 20140515
  Receipt Date: 20140515
  Transmission Date: 20141212
  Serious: Yes (Other)
  Sender: FDA-Public Use
  Company Number: AUR-APL-2014-05597

PATIENT
  Age: 68 Year
  Sex: Male

DRUGS (2)
  1. LEVETIRACETAM (LEVETIRACETAM) [Suspect]
     Indication: PARTIAL SEIZURES
     Dosage: UNKNOWN
  2. PHENYTOIN (PHENYTOIN) [Suspect]
     Indication: CONVULSION
     Dosage: UNKNOWN

REACTIONS (1)
  - Dyskinesia [None]
